FAERS Safety Report 4645666-6 (Version None)
Quarter: 2005Q2

REPORT INFORMATION
  Report Type: 
  Country: None (occurrence: None)
  Receive Date: 20050331
  Receipt Date: 20050221
  Transmission Date: 20051028
  Serious: No
  Sender: FDA-Public Use
  Company Number: 05P-163-0291580-00

PATIENT
  Age: 56 Year
  Sex: Female
  Weight: 110 kg

DRUGS (4)
  1. HUMIRA [Suspect]
     Indication: RHEUMATOID ARTHRITIS
     Dosage: 40 MG, 1 IN 2 WK, SUBCUTANEOUS
     Route: 058
     Dates: start: 20050101, end: 20050101
  2. METHOTREXATE [Concomitant]
  3. SERTRALINE HYDROCHLORIDE [Concomitant]
  4. NAPROXEN SODIUM [Concomitant]

REACTIONS (3)
  - CONDITION AGGRAVATED [None]
  - HAEMOGLOBIN DECREASED [None]
  - NASOPHARYNGITIS [None]
